FAERS Safety Report 8297765-8 (Version None)
Quarter: 2012Q2

REPORT INFORMATION
  Report Type: 
  Country: None (occurrence: None)
  Receive Date: 20120419
  Receipt Date: 20120416
  Transmission Date: 20120825
  Serious: No
  Sender: FDA-Public Use
  Company Number: US-PFIZER INC-2012094278

PATIENT
  Sex: Male

DRUGS (8)
  1. VIAGRA [Suspect]
     Dosage: 100 MG, UNK
  2. LISINOPRIL [Concomitant]
     Dosage: 5 MG, 1X/DAY
  3. OXYMETAZOLINE [Concomitant]
     Dosage: INCIDENTALLY ABOUT 15 MIN BEFORE RELATIONS
     Route: 045
  4. OMEPRAZOLE [Concomitant]
     Dosage: 20 MG, 1X/DAY
  5. ACETYLSALICYLIC ACID [Concomitant]
     Dosage: 82 MG, 1X/DAY
  6. PROSCAR [Concomitant]
     Dosage: 5 MG, 1X/DAY
  7. FLOMAX [Concomitant]
     Dosage: 0.4 MG, 1X/DAY
  8. SIMVASTATIN [Concomitant]
     Dosage: 20 MG, 1X/DAY

REACTIONS (2)
  - DRUG EFFECT DECREASED [None]
  - ANORGASMIA [None]
